FAERS Safety Report 7260914-4 (Version None)
Quarter: 2011Q1

REPORT INFORMATION
  Report Type: 
  Country: None (occurrence: None)
  Receive Date: 20110128
  Receipt Date: 20110128
  Transmission Date: 20110831
  Serious: Yes (Other)
  Sender: FDA-Public Use
  Company Number: None

PATIENT
  Age: 45 Year
  Sex: Male
  Weight: 70.3075 kg

DRUGS (1)
  1. ALCOHOL PREP PADS 70% TRIAD GROUP INC. [Suspect]
     Indication: MULTIPLE SCLEROSIS
     Dosage: ONCE DAILY TOP
     Route: 061
     Dates: start: 20100101, end: 20110125

REACTIONS (7)
  - PAIN [None]
  - SWELLING [None]
  - CONTUSION [None]
  - ASTHENIA [None]
  - FATIGUE [None]
  - BURNING SENSATION [None]
  - CHILLS [None]
